FAERS Safety Report 18969770 (Version 1)
Quarter: 2021Q1

REPORT INFORMATION
  Report Type: Spontaneous
  Country: FR (occurrence: FR)
  Receive Date: 20210304
  Receipt Date: 20210304
  Transmission Date: 20210420
  Serious: Yes (Death)
  Sender: FDA-Public Use
  Company Number: NVSC2021FR049939

PATIENT
  Age: 93 Year
  Sex: Male

DRUGS (3)
  1. FLUOXETINE [Suspect]
     Active Substance: FLUOXETINE HYDROCHLORIDE
     Indication: MIXED ANXIETY AND DEPRESSIVE DISORDER
     Dosage: 10 MG, QD (CHLOROHYDRATE DE)
     Route: 048
     Dates: end: 20210218
  2. KARDEGIC [Suspect]
     Active Substance: ASPIRIN DL-LYSINE
     Indication: CARDIOVASCULAR EVENT PROPHYLAXIS
     Dosage: 1 DF, QD
     Route: 048
     Dates: end: 20210218
  3. BROMAZEPAM [Suspect]
     Active Substance: BROMAZEPAM
     Indication: MIXED ANXIETY AND DEPRESSIVE DISORDER
     Dosage: 2 DF, QD
     Route: 048
     Dates: end: 20210218

REACTIONS (1)
  - Fall [Fatal]

NARRATIVE: CASE EVENT DATE: 20210219
